FAERS Safety Report 17980093 (Version 2)
Quarter: 2020Q3

REPORT INFORMATION
  Report Type: Spontaneous
  Country: IT (occurrence: IT)
  Receive Date: 20200703
  Receipt Date: 20200724
  Transmission Date: 20201103
  Serious: Yes (Other)
  Sender: FDA-Public Use
  Company Number: IT-MYLANLABS-2020M1059886

PATIENT
  Age: 52 Year
  Sex: Male

DRUGS (1)
  1. COPEMYLTRI [Suspect]
     Active Substance: GLATIRAMER ACETATE
     Indication: MULTIPLE SCLEROSIS
     Dosage: UNK
     Route: 058

REACTIONS (2)
  - Dermo-hypodermitis [Recovered/Resolved with Sequelae]
  - Injection site reaction [Recovered/Resolved with Sequelae]

NARRATIVE: CASE EVENT DATE: 20200603
